FAERS Safety Report 9046254 (Version 1)
Quarter: 2013Q1

REPORT INFORMATION
  Report Type: Spontaneous
  Country: US (occurrence: US)
  Receive Date: 20130201
  Receipt Date: 20130201
  Transmission Date: 20140127
  Serious: Yes (Other)
  Sender: FDA-Public Use
  Company Number: US-UCBSA-076870

PATIENT
  Age: 20 Year
  Sex: Female

DRUGS (1)
  1. CIMZIA [Suspect]
     Indication: CROHN^S DISEASE
     Dosage: WEEK 0,2 AND 4
     Dates: start: 20130106, end: 201301

REACTIONS (1)
  - Hypersensitivity [Not Recovered/Not Resolved]
